FAERS Safety Report 15735819 (Version 1)
Quarter: 2018Q4

REPORT INFORMATION
  Report Type: Report from Study
  Country: DK (occurrence: DK)
  Receive Date: 20181218
  Receipt Date: 20181218
  Transmission Date: 20190205
  Serious: Yes (Death, Other)
  Sender: FDA-Public Use
  Company Number: DK-RECRO GAINESVILLE LLC-REPH-2018-000087

PATIENT

DRUGS (6)
  1. CODEINE [Concomitant]
     Active Substance: CODEINE
     Indication: PRODUCT USED FOR UNKNOWN INDICATION
     Dosage: UNK
  2. TOPIRAMATE. [Concomitant]
     Active Substance: TOPIRAMATE
     Indication: PRODUCT USED FOR UNKNOWN INDICATION
     Dosage: UNK
  3. QUETIAPINE. [Concomitant]
     Active Substance: QUETIAPINE
     Indication: PRODUCT USED FOR UNKNOWN INDICATION
     Dosage: UNK
  4. TRAMADOL. [Concomitant]
     Active Substance: TRAMADOL
     Indication: PRODUCT USED FOR UNKNOWN INDICATION
     Dosage: UNK
  5. ACETAMINOPHEN. [Concomitant]
     Active Substance: ACETAMINOPHEN
     Indication: PRODUCT USED FOR UNKNOWN INDICATION
     Dosage: UNK
  6. VERAPAMIL HYDROCHLORIDE EXTENDED RELEASE [Suspect]
     Active Substance: VERAPAMIL HYDROCHLORIDE
     Dosage: 240 MG, UNK
     Route: 065

REACTIONS (14)
  - Urine output decreased [Unknown]
  - Bradycardia [Unknown]
  - Acidosis [Unknown]
  - Peripheral coldness [Unknown]
  - Pallor [Unknown]
  - Hypothermia [Unknown]
  - Electrocardiogram ST segment depression [Unknown]
  - Intentional overdose [Fatal]
  - Unresponsive to stimuli [Unknown]
  - Seizure [Unknown]
  - Hypotension [Unknown]
  - Cardiac arrest [Fatal]
  - Blood lactic acid increased [Unknown]
  - Pulseless electrical activity [Unknown]
